FAERS Safety Report 9247268 (Version 1)
Quarter: 2013Q2

REPORT INFORMATION
  Report Type: Spontaneous
  Country: US (occurrence: US)
  Receive Date: 20130423
  Receipt Date: 20130423
  Transmission Date: 20140414
  Serious: Yes (Hospitalization)
  Sender: FDA-Public Use
  Company Number: US-AMGEN-USASP2013027271

PATIENT
  Age: 40 Year
  Sex: Female
  Weight: 97.96 kg

DRUGS (10)
  1. ENBREL [Suspect]
     Indication: PRODUCT USED FOR UNKNOWN INDICATION
     Dosage: 50 MG, QWK
     Route: 058
  2. EFEXOR [Concomitant]
     Dosage: 25 MG, UNK
  3. DETROL LA [Concomitant]
     Dosage: 2 MG, UNK
  4. AMBIEN [Concomitant]
     Dosage: 10 MG, UNK
  5. CELEBREX [Concomitant]
     Dosage: 100 MG, UNK
  6. HYDROCHLORTHIAZID [Concomitant]
     Dosage: 12.5 MG, UNK
  7. TOPROL [Concomitant]
     Dosage: 25 MG, UNK
  8. MOBIC [Concomitant]
     Dosage: 15 MG, UNK
  9. ACIPHEX [Concomitant]
     Dosage: 20 MG, UNK
  10. BENICAR [Concomitant]
     Dosage: 5 MG, UNK

REACTIONS (2)
  - Diverticulitis [Recovered/Resolved]
  - Staphylococcal infection [Recovered/Resolved]
